FAERS Safety Report 15899912 (Version 1)
Quarter: 2019Q1

REPORT INFORMATION
  Report Type: Spontaneous
  Country: IT (occurrence: IT)
  Receive Date: 20190201
  Receipt Date: 20190201
  Transmission Date: 20190417
  Serious: Yes (Life-Threatening, Other)
  Sender: FDA-Public Use
  Company Number: IT-BAUSCH-BL-2019-002549

PATIENT
  Age: 35 Year
  Sex: Female

DRUGS (3)
  1. SODIUM CHLORIDE. [Suspect]
     Active Substance: SODIUM CHLORIDE
     Indication: PRODUCT USED FOR UNKNOWN INDICATION
     Dosage: ABOUT 2000 ML
     Route: 065
  2. DEXAMETHASONE. [Suspect]
     Active Substance: DEXAMETHASONE
     Indication: THREATENED LABOUR
     Route: 065
  3. ATOSIBAN [Concomitant]
     Active Substance: ATOSIBAN
     Indication: THREATENED LABOUR

REACTIONS (3)
  - Maternal exposure during pregnancy [Recovered/Resolved]
  - Fluid overload [Recovering/Resolving]
  - Cardiac failure congestive [Recovering/Resolving]
